FAERS Safety Report 4864219-8 (Version None)
Quarter: 2005Q4

REPORT INFORMATION
  Report Type: 
  Country: None (occurrence: None)
  Receive Date: 20051220
  Receipt Date: 20051220
  Transmission Date: 20060501
  Serious: Yes (Life-Threatening, Disabling)
  Sender: FDA-Public Use
  Company Number: None

PATIENT
  Weight: 92 kg

DRUGS (1)
  1. ETANERCEPT  25 MG WYETH [Suspect]
     Indication: RHEUMATOID ARTHRITIS
     Dosage: 25 MG 2X WEEK  SQ
     Route: 058
     Dates: start: 20021107, end: 20051102

REACTIONS (8)
  - ASTHENIA [None]
  - CSF LYMPHOCYTE COUNT INCREASED [None]
  - CSF MYELIN BASIC PROTEIN INCREASED [None]
  - CSF PROTEIN INCREASED [None]
  - DEMYELINATION [None]
  - NEUROLOGICAL SYMPTOM [None]
  - OPTIC NEUROPATHY [None]
  - SPINAL COLUMN STENOSIS [None]
